FAERS Safety Report 5890306-1 (Version None)
Quarter: 2008Q3

REPORT INFORMATION
  Report Type: 
  Country: None (occurrence: None)
  Receive Date: 20080918
  Receipt Date: 20080912
  Transmission Date: 20090109
  Serious: Yes (Life-Threatening, Hospitalization)
  Sender: FDA-Public Use
  Company Number: 2008SP001965

PATIENT
  Age: 63 Year
  Sex: Male
  Weight: 109.2 kg

DRUGS (16)
  1. LUNESTA [Suspect]
     Indication: INSOMNIA
     Dosage: SEE IMAGE
     Route: 048
     Dates: start: 20070101, end: 20070717
  2. ENBREL [Suspect]
     Indication: RHEUMATOID ARTHRITIS
     Dosage: 50 MG;QW
     Dates: start: 20080501, end: 20080701
  3. XANAX [Concomitant]
  4. LAMICTAL [Concomitant]
  5. PROZAC [Concomitant]
  6. OXYCONTIN [Concomitant]
  7. PERCOCET [Concomitant]
  8. FINASTERIDE [Concomitant]
  9. MIRAPEX [Concomitant]
  10. CELEBREX [Concomitant]
  11. METHOTREXATE [Concomitant]
  12. ATENOLOL [Concomitant]
  13. ZOCOR [Concomitant]
  14. ABILIFY [Concomitant]
  15. ATIVAN [Concomitant]
  16. PREV MEDS=UNKNOWN [Concomitant]

REACTIONS (34)
  - ANXIETY [None]
  - ASTHENIA [None]
  - CHEST DISCOMFORT [None]
  - DELIRIUM [None]
  - DERMATITIS [None]
  - DIARRHOEA [None]
  - DRUG INEFFECTIVE [None]
  - DYSARTHRIA [None]
  - DYSPHAGIA [None]
  - ERYTHEMA [None]
  - FATIGUE [None]
  - FEBRILE NEUTROPENIA [None]
  - FEELING COLD [None]
  - GAIT DISTURBANCE [None]
  - HAEMOPTYSIS [None]
  - HEADACHE [None]
  - HYPOGLYCAEMIA [None]
  - INSOMNIA [None]
  - LACERATION [None]
  - LETHARGY [None]
  - MASTICATION DISORDER [None]
  - MOUTH INJURY [None]
  - ORAL CANDIDIASIS [None]
  - OROPHARYNGEAL PAIN [None]
  - PANCYTOPENIA [None]
  - PNEUMONIA [None]
  - PRURITUS [None]
  - RASH [None]
  - SOMNOLENCE [None]
  - STAPHYLOCOCCAL INFECTION [None]
  - THROAT TIGHTNESS [None]
  - TRANSIENT ISCHAEMIC ATTACK [None]
  - TREATMENT NONCOMPLIANCE [None]
  - WEIGHT DECREASED [None]
